FAERS Safety Report 16283455 (Version 2)
Quarter: 2019Q3

REPORT INFORMATION
  Report Type: Report from Study
  Country: US (occurrence: US)
  Receive Date: 20190507
  Receipt Date: 20190710
  Transmission Date: 20191004
  Serious: No
  Sender: FDA-Public Use
  Company Number: PHEH2019US019521

PATIENT
  Age: 51 Year
  Sex: Female

DRUGS (1)
  1. GILENYA [Suspect]
     Active Substance: FINGOLIMOD HYDROCHLORIDE
     Indication: MULTIPLE SCLEROSIS
     Dosage: 0.5 MG, QD
     Route: 048
     Dates: start: 20190501, end: 20190501

REACTIONS (6)
  - Nasopharyngitis [Unknown]
  - Headache [Unknown]
  - Sinusitis [Unknown]
  - Somnolence [Unknown]
  - Flushing [Unknown]
  - Piloerection [Unknown]

NARRATIVE: CASE EVENT DATE: 20190501
